FAERS Safety Report 10075144 (Version 1)
Quarter: 2014Q2

REPORT INFORMATION
  Report Type: Spontaneous
  Country: US (occurrence: US)
  Receive Date: 20140414
  Receipt Date: 20140414
  Transmission Date: 20141212
  Serious: No
  Sender: FDA-Public Use
  Company Number: US-BIOGENIDEC-2014BI029750

PATIENT
  Age: 54 Year
  Sex: Female

DRUGS (4)
  1. TECFIDERA [Suspect]
     Indication: RELAPSING-REMITTING MULTIPLE SCLEROSIS
     Route: 048
     Dates: start: 20140326
  2. AMLODIPINE [Concomitant]
  3. CLOBETASOL [Concomitant]
  4. TYLENOL [Concomitant]

REACTIONS (5)
  - Feeling hot [Not Recovered/Not Resolved]
  - Anxiety [Unknown]
  - Rash pruritic [Unknown]
  - Erythema [Not Recovered/Not Resolved]
  - Burning sensation [Not Recovered/Not Resolved]
